FAERS Safety Report 9348047 (Version 3)
Quarter: 2013Q3

REPORT INFORMATION
  Report Type: Spontaneous
  Country: US (occurrence: US)
  Receive Date: 20130614
  Receipt Date: 20130708
  Transmission Date: 20140515
  Serious: Yes (Life-Threatening, Hospitalization)
  Sender: FDA-Public Use
  Company Number: US-JNJFOC-20130603461

PATIENT
  Sex: Male
  Weight: 99.79 kg

DRUGS (7)
  1. XARELTO [Suspect]
     Indication: CEREBROVASCULAR ACCIDENT PROPHYLAXIS
     Route: 048
  2. XARELTO [Suspect]
     Indication: ATRIAL FIBRILLATION
     Route: 048
  3. ASA [Concomitant]
     Route: 065
  4. TOPROL [Concomitant]
     Route: 065
  5. ZOCOR [Concomitant]
     Route: 065
  6. NORCO [Concomitant]
     Route: 065
  7. SOMA [Concomitant]
     Route: 065

REACTIONS (1)
  - Transient ischaemic attack [Recovering/Resolving]
